FAERS Safety Report 23355447 (Version 1)
Quarter: 2024Q1

REPORT INFORMATION
  Report Type: Spontaneous
  Country: US (occurrence: US)
  Receive Date: 20240102
  Receipt Date: 20240102
  Transmission Date: 20240409
  Serious: No
  Sender: FDA-Public Use
  Company Number: US-SA-SAC20231226000552

PATIENT
  Sex: Female

DRUGS (2)
  1. DUPIXENT [Suspect]
     Active Substance: DUPILUMAB
     Indication: Asthma
     Dosage: 600MG , 1X
     Route: 058
  2. DUPIXENT [Suspect]
     Active Substance: DUPILUMAB
     Indication: Haematuria
     Dosage: 300 MG, QOW
     Route: 058

REACTIONS (4)
  - Skin induration [Unknown]
  - Peripheral coldness [Unknown]
  - Pain of skin [Unknown]
  - Product use in unapproved indication [Unknown]
